FAERS Safety Report 12516848 (Version 1)
Quarter: 2016Q2

REPORT INFORMATION
  Report Type: Spontaneous
  Country: US (occurrence: US)
  Receive Date: 20160630
  Receipt Date: 20160630
  Transmission Date: 20160815
  Serious: No
  Sender: FDA-Public Use
  Company Number: US-FRI-1000084090

PATIENT
  Age: 61 Year
  Sex: Female

DRUGS (5)
  1. WELLBUTRIN [Concomitant]
     Active Substance: BUPROPION HYDROCHLORIDE
     Indication: DEPRESSION
     Dosage: 300MG
     Route: 048
  2. NAMZARIC [Suspect]
     Active Substance: DONEPEZIL HYDROCHLORIDE\MEMANTINE HYDROCHLORIDE
     Indication: NERVOUS SYSTEM DISORDER
     Dosage: 28MG/10MG
     Route: 048
     Dates: start: 20160410
  3. NAMZARIC [Suspect]
     Active Substance: DONEPEZIL HYDROCHLORIDE\MEMANTINE HYDROCHLORIDE
     Indication: COGNITIVE DISORDER
     Dosage: 28MG/10MG
     Route: 048
     Dates: start: 20160410
  4. LIPITOR [Concomitant]
     Active Substance: ATORVASTATIN CALCIUM
     Indication: BLOOD CHOLESTEROL INCREASED
     Route: 048
     Dates: start: 2015
  5. HYZAAR [Concomitant]
     Active Substance: HYDROCHLOROTHIAZIDE\LOSARTAN POTASSIUM
     Indication: HYPERTENSION
     Dosage: 12.5MG/50MG
     Route: 048

REACTIONS (8)
  - Feeling abnormal [Not Recovered/Not Resolved]
  - Initial insomnia [Unknown]
  - Tinnitus [Recovering/Resolving]
  - Hypervigilance [Not Recovered/Not Resolved]
  - Photopsia [Recovered/Resolved]
  - Mental disorder [Not Recovered/Not Resolved]
  - Hallucination, visual [Recovered/Resolved]
  - Off label use [Not Recovered/Not Resolved]

NARRATIVE: CASE EVENT DATE: 20160410
